FAERS Safety Report 6075285-9 (Version None)
Quarter: 2009Q1

REPORT INFORMATION
  Report Type: 
  Country: None (occurrence: None)
  Receive Date: 20090212
  Receipt Date: 20090206
  Transmission Date: 20090719
  Serious: Yes (Hospitalization)
  Sender: FDA-Public Use
  Company Number: PHHY2009JP03278

PATIENT
  Age: 64 Year
  Sex: Male
  Weight: 62 kg

DRUGS (3)
  1. CYCLOSPORINE [Suspect]
     Indication: AUTOIMMUNE HEPATITIS
     Dosage: 100 MG/DAY
     Route: 048
  2. PREDNISOLONE [Concomitant]
     Indication: AUTOIMMUNE HEPATITIS
     Dosage: 60 MG/DAY
     Route: 048
  3. AZATHIOPRINE [Concomitant]
     Dosage: 50 MG/DAY
     Route: 048

REACTIONS (13)
  - ANAEMIA [None]
  - BLISTER [None]
  - CHOLANGITIS [None]
  - HEPATIC FUNCTION ABNORMAL [None]
  - HERPES ZOSTER [None]
  - INSOMNIA [None]
  - PAIN [None]
  - PLATELET COUNT DECREASED [None]
  - POST HERPETIC NEURALGIA [None]
  - PRURITUS [None]
  - RASH [None]
  - RENAL IMPAIRMENT [None]
  - SEPSIS [None]
